FAERS Safety Report 19211386 (Version 1)
Quarter: 2021Q2

REPORT INFORMATION
  Report Type: Spontaneous
  Country: CN (occurrence: CN)
  Receive Date: 20210504
  Receipt Date: 20210504
  Transmission Date: 20210717
  Serious: Yes (Death)
  Sender: FDA-Public Use
  Company Number: CN-ASTRAZENECA-2021A382830

PATIENT
  Age: 86 Year
  Sex: Male
  Weight: 78 kg

DRUGS (1)
  1. IMFINZI [Suspect]
     Active Substance: DURVALUMAB
     Indication: NON-SMALL CELL LUNG CANCER STAGE III
     Dosage: 1000 MG/CYCLE.
     Route: 042
     Dates: start: 20201130, end: 20201222

REACTIONS (1)
  - Death [Fatal]
